FAERS Safety Report 15292635 (Version 1)
Quarter: 2018Q3

REPORT INFORMATION
  Report Type: Spontaneous
  Country: US (occurrence: US)
  Receive Date: 20180819
  Receipt Date: 20180819
  Transmission Date: 20181010
  Serious: No
  Sender: FDA-Public Use
  Company Number: US-JNJFOC-20180740156

PATIENT
  Sex: Male

DRUGS (3)
  1. MOTRIN [Suspect]
     Active Substance: IBUPROFEN
     Route: 065
  2. TYLENOL PM EXTRA STRENGTH [Suspect]
     Active Substance: ACETAMINOPHEN\DIPHENHYDRAMINE HYDROCHLORIDE
     Indication: SLEEP DISORDER THERAPY
     Dosage: TWO TABLETS ONE TIME
     Route: 048
     Dates: start: 20180729, end: 20180729
  3. MOTRIN [Suspect]
     Active Substance: IBUPROFEN
     Indication: SLEEP DISORDER THERAPY
     Route: 065

REACTIONS (1)
  - Product use in unapproved indication [Unknown]
